FAERS Safety Report 10732257 (Version 1)
Quarter: 2015Q1

REPORT INFORMATION
  Report Type: Spontaneous
  Country: HR (occurrence: HR)
  Receive Date: 20150123
  Receipt Date: 20150123
  Transmission Date: 20150721
  Serious: Yes (Hospitalization, Other)
  Sender: FDA-Public Use
  Company Number: HR-TEVA-535130ISR

PATIENT
  Age: 64 Year
  Sex: Female
  Weight: 65 kg

DRUGS (3)
  1. ETOPOSIDE PFIZER [Suspect]
     Active Substance: ETOPOSIDE
     Indication: GASTRIC CANCER
     Route: 042
     Dates: start: 20131113, end: 20131115
  2. CALCIUM FOLINATE [Suspect]
     Active Substance: LEUCOVORIN CALCIUM
     Indication: GASTRIC CANCER
     Route: 042
     Dates: start: 20131113, end: 20131115
  3. FLUOROURACIL PLIVA [Suspect]
     Active Substance: FLUOROURACIL
     Indication: GASTRIC CANCER
     Route: 042
     Dates: start: 20131113, end: 20131115

REACTIONS (3)
  - Enterococcus test positive [Recovered/Resolved]
  - Febrile neutropenia [Recovered/Resolved]
  - Chills [Recovered/Resolved]

NARRATIVE: CASE EVENT DATE: 201311
